FAERS Safety Report 12326109 (Version 1)
Quarter: 2016Q2

REPORT INFORMATION
  Report Type: Spontaneous
  Country: FR (occurrence: FR)
  Receive Date: 20160503
  Receipt Date: 20160503
  Transmission Date: 20160815
  Serious: Yes (Other)
  Sender: FDA-Public Use
  Company Number: FR-ACCORD-040224

PATIENT
  Age: 70 Year
  Sex: Female

DRUGS (3)
  1. FOLINIC ACID [Suspect]
     Active Substance: LEUCOVORIN
     Indication: PANCREATIC NEUROENDOCRINE TUMOUR METASTATIC
     Dosage: RECEIVED 7TH CYCLE ON 7-APR-2016 AT DOSE OF 85 MG/M^2
     Dates: start: 20160107
  2. FLUOROURACIL. [Suspect]
     Active Substance: FLUOROURACIL
     Indication: PANCREATIC NEUROENDOCRINE TUMOUR METASTATIC
     Dosage: RECEIVED 7TH CYCLE ON 7-APR-2016 AT DOSE OF 85 MG/M^2
     Dates: start: 20160107
  3. OXALIPLATIN ACCORD [Suspect]
     Active Substance: OXALIPLATIN
     Indication: PANCREATIC NEUROENDOCRINE TUMOUR METASTATIC
     Dosage: RECEIVED 7TH CYCLE ON 7-APR-2016 AT DOSE OF 85 MG/M^2
     Route: 042
     Dates: start: 20160107

REACTIONS (2)
  - Renal failure [Unknown]
  - Anaphylactic reaction [Recovered/Resolved]

NARRATIVE: CASE EVENT DATE: 20160407
